FAERS Safety Report 11403966 (Version 1)
Quarter: 2015Q3

REPORT INFORMATION
  Report Type: Report from Study
  Country: KR (occurrence: KR)
  Receive Date: 20150821
  Receipt Date: 20150821
  Transmission Date: 20151125
  Serious: Yes (Hospitalization)
  Sender: FDA-Public Use
  Company Number: KR-ELI_LILLY_AND_COMPANY-KR201306005914

PATIENT
  Age: 60 Year
  Sex: Female
  Weight: 60 kg

DRUGS (3)
  1. LISPRO 25LIS75NPL KWIKPEN / MIRIOPEN [Suspect]
     Active Substance: INSULIN LISPRO
     Dosage: 20 U, QD
     Route: 058
  2. LISPRO 25LIS75NPL KWIKPEN / MIRIOPEN [Suspect]
     Active Substance: INSULIN LISPRO
     Indication: TYPE 2 DIABETES MELLITUS
     Dosage: 30 U, QD
     Route: 058
     Dates: start: 20130405
  3. LISPRO 25LIS75NPL KWIKPEN / MIRIOPEN [Suspect]
     Active Substance: INSULIN LISPRO
     Dosage: 8 U, QD
     Route: 058

REACTIONS (9)
  - Fall [Unknown]
  - Hypoglycaemia [Recovered/Resolved]
  - Muscle spasms [Unknown]
  - Oedema peripheral [Unknown]
  - Weight increased [Unknown]
  - Tremor [Recovered/Resolved]
  - Cold sweat [Recovered/Resolved]
  - Hunger [Not Recovered/Not Resolved]
  - Blood glucose increased [Unknown]

NARRATIVE: CASE EVENT DATE: 201306
